FAERS Safety Report 7558071-X (Version None)
Quarter: 2011Q2

REPORT INFORMATION
  Report Type: 
  Country: None (occurrence: None)
  Receive Date: 20110620
  Receipt Date: 20110610
  Transmission Date: 20111010
  Serious: Yes (Hospitalization, Other)
  Sender: FDA-Public Use
  Company Number: US-ABBOTT-11P-163-0731957-00

PATIENT
  Age: 33 Year
  Sex: Female

DRUGS (1)
  1. HUMIRA [Suspect]
     Indication: PRODUCT USED FOR UNKNOWN INDICATION
     Route: 058
     Dates: start: 20090701, end: 20100801

REACTIONS (13)
  - VOMITING [None]
  - FISTULA [None]
  - ARTHRALGIA [None]
  - WOUND ABSCESS [None]
  - JOINT ABSCESS [None]
  - WOUND INFECTION STAPHYLOCOCCAL [None]
  - CROHN'S DISEASE [None]
  - IMPAIRED HEALING [None]
  - GASTROINTESTINAL ANASTOMOTIC LEAK [None]
  - ABDOMINAL PAIN [None]
  - INJECTION SITE PAIN [None]
  - ABDOMINAL ABSCESS [None]
  - COLITIS [None]
